FAERS Safety Report 4779067-7 (Version None)
Quarter: 2005Q3

REPORT INFORMATION
  Report Type: 
  Country: None (occurrence: None)
  Receive Date: 20050923
  Receipt Date: 20050915
  Transmission Date: 20060218
  Serious: Yes (Other)
  Sender: FDA-Public Use
  Company Number: GRP05000232

PATIENT
  Age: 66 Year
  Sex: Female

DRUGS (4)
  1. ACTONEL EINMAL W CHENTLICH(RISEDRONATE SODIUM) TABLET, 35MG [Suspect]
     Indication: OSTEOPOROSIS POSTMENOPAUSAL
     Dosage: 35 MG 1/WEEK ORAL
     Route: 048
     Dates: start: 20041203
  2. CALCIUM CARBONATE [Concomitant]
  3. VITAMIN D [Concomitant]
  4. ANALGESICS [Concomitant]

REACTIONS (2)
  - DEVICE MIGRATION [None]
  - PAIN IN EXTREMITY [None]
